FAERS Safety Report 6783760-4 (Version None)
Quarter: 2010Q2

REPORT INFORMATION
  Report Type: 
  Country: None (occurrence: None)
  Receive Date: 20100622
  Receipt Date: 20100616
  Transmission Date: 20101027
  Serious: Yes (Hospitalization)
  Sender: FDA-Public Use
  Company Number: GB-AMGEN-QUU419232

PATIENT
  Sex: Female
  Weight: 90 kg

DRUGS (9)
  1. ENBREL [Suspect]
     Indication: RHEUMATOID ARTHRITIS
     Route: 058
     Dates: start: 20051206, end: 20090515
  2. AMITRIPTYLINE [Concomitant]
     Dosage: UNKNOWN
  3. FOLIC ACID [Concomitant]
     Dosage: UNKNOWN
  4. METHOTREXATE [Concomitant]
     Indication: RHEUMATOID ARTHRITIS
     Dosage: UNKNOWN
  5. NEORAL [Concomitant]
     Dosage: UNKNOWN
  6. RANITIDINE [Concomitant]
     Dosage: UNKNOWN
  7. LEVOTHYROXINE SODIUM [Concomitant]
     Dosage: UNKNOWN
  8. PREDNISOLONE [Concomitant]
     Dosage: UNKNOWN
  9. LORAZEPAM [Concomitant]
     Dosage: UNKNOWN

REACTIONS (1)
  - COLITIS [None]
